FAERS Safety Report 9082226 (Version 1)
Quarter: 2013Q1

REPORT INFORMATION
  Report Type: Report from Study
  Country: US (occurrence: US)
  Receive Date: 20130130
  Receipt Date: 20130130
  Transmission Date: 20140127
  Serious: No
  Sender: FDA-Public Use
  Company Number: US-ABBOTT-12P-163-0957503-00

PATIENT
  Age: 52 Year
  Sex: Female

DRUGS (4)
  1. HUMIRA 40 MG/0.8 ML PEN [Suspect]
     Indication: CROHN^S DISEASE
  2. LEVOTHYROXINE [Concomitant]
     Indication: HYPOTHYROIDISM
  3. AMLODIPINE [Concomitant]
     Indication: HYPERTENSION
  4. B12 [Concomitant]
     Indication: PRODUCT USED FOR UNKNOWN INDICATION
     Route: 050

REACTIONS (3)
  - Papule [Not Recovered/Not Resolved]
  - Psoriasis [Not Recovered/Not Resolved]
  - Urticaria [Not Recovered/Not Resolved]
